FAERS Safety Report 6664010-6 (Version None)
Quarter: 2010Q2

REPORT INFORMATION
  Report Type: 
  Country: None (occurrence: None)
  Receive Date: 20100401
  Receipt Date: 20100322
  Transmission Date: 20101027
  Serious: Yes (Hospitalization)
  Sender: FDA-Public Use
  Company Number: US-ABBOTT-09P-163-0614798-00

PATIENT
  Sex: Female

DRUGS (13)
  1. HUMIRA [Suspect]
     Indication: CROHN'S DISEASE
     Route: 058
  2. PREDNISONE TAB [Concomitant]
     Indication: CROHN'S DISEASE
  3. METOPROLOL [Concomitant]
     Indication: HYPERTENSION
  4. ZYRTEC [Concomitant]
     Indication: HYPERSENSITIVITY
  5. NEXIUM [Concomitant]
     Indication: HYPERCHLORHYDRIA
  6. ASPIRIN [Concomitant]
     Indication: MYOCARDIAL INFARCTION
  7. ELMIRON [Concomitant]
     Indication: CYSTITIS INTERSTITIAL
  8. PROSED/DS [Concomitant]
     Indication: TUBULOINTERSTITIAL NEPHRITIS
  9. HYDROXYZINE [Concomitant]
     Indication: DRUG USE FOR UNKNOWN INDICATION
  10. CLONAZEPAM [Concomitant]
     Indication: RESTLESS LEGS SYNDROME
  11. LOMOTIL [Concomitant]
     Indication: DIARRHOEA
     Dosage: 4 TABLETS
  12. BALSALAZIDE [Concomitant]
     Indication: COLITIS
     Dates: end: 20090918
  13. ESCITALOPRAM OXALATE [Concomitant]
     Indication: DEPRESSION
     Dates: end: 20091201

REACTIONS (4)
  - ASTHENIA [None]
  - CONFUSIONAL STATE [None]
  - GAIT DISTURBANCE [None]
  - MEMORY IMPAIRMENT [None]
